FAERS Safety Report 5166291-7 (Version None)
Quarter: 2006Q4

REPORT INFORMATION
  Report Type: 
  Country: None (occurrence: None)
  Receive Date: 20061124
  Receipt Date: 20061113
  Transmission Date: 20070319
  Serious: Yes (Other)
  Sender: FDA-Public Use
  Company Number: DSA_28775_2006

PATIENT
  Age: 43 Year
  Sex: Female

DRUGS (1)
  1. VASOTEC [Suspect]
     Dosage: 5 MG QD PO
     Route: 048
     Dates: start: 20060918, end: 20060926

REACTIONS (1)
  - HEPATIC NECROSIS [None]
